FAERS Safety Report 8305504-7 (Version None)
Quarter: 2012Q2

REPORT INFORMATION
  Report Type: 
  Country: None (occurrence: None)
  Receive Date: 20120423
  Receipt Date: 20120411
  Transmission Date: 20120825
  Serious: Yes (Hospitalization, Disabling)
  Sender: FDA-Public Use
  Company Number: FR-GLAXOSMITHKLINE-B0696326A

PATIENT
  Sex: Female

DRUGS (20)
  1. PROZAC [Concomitant]
     Dosage: 20MG PER DAY
     Route: 048
     Dates: start: 20091022
  2. OMEPRAZOLE [Concomitant]
     Dosage: 20MG PER DAY
     Route: 048
     Dates: start: 20100113
  3. FERROUS SULFATE TAB [Concomitant]
     Route: 048
  4. CALCIUM CARBONATE [Concomitant]
     Route: 048
     Dates: start: 20100414
  5. DEXERYL (FRANCE) [Concomitant]
     Route: 061
  6. LEXOMIL [Concomitant]
     Route: 048
  7. AVANDAMET [Suspect]
     Indication: TYPE 2 DIABETES MELLITUS
     Route: 048
     Dates: start: 20040301, end: 20100801
  8. GLUCOPHAGE [Concomitant]
     Indication: TYPE 2 DIABETES MELLITUS
     Dosage: 1000MG PER DAY
     Route: 048
     Dates: start: 20040301
  9. BIAFINE [Concomitant]
     Route: 061
  10. ATARAX [Concomitant]
     Dosage: 25MG AS REQUIRED
     Route: 048
  11. VALSARTAN  AND HYDROCHLOROTHIAZIDE [Concomitant]
     Dosage: 80MG PER DAY
     Route: 048
     Dates: start: 20080401
  12. LEVOTHYROXINE SODIUM [Concomitant]
     Dosage: 112.5MCG PER DAY
     Route: 048
  13. ACETAMINOPHEN [Concomitant]
  14. JANUVIA [Concomitant]
     Dosage: 1TAB PER DAY
     Route: 048
     Dates: start: 20100113
  15. CELECTOL [Concomitant]
     Dosage: 1TAB PER DAY
     Route: 048
     Dates: start: 20080401
  16. TRAMADOL HCL [Concomitant]
     Route: 048
  17. CRESTOR [Concomitant]
     Dosage: 5MG PER DAY
     Route: 048
     Dates: start: 20100512
  18. NEXIUM [Concomitant]
     Dosage: 20MG PER DAY
     Route: 048
     Dates: start: 20100512
  19. GAVISCON [Concomitant]
     Dosage: 2SAC PER DAY
     Route: 048
     Dates: start: 20080529
  20. ANTALGIC [Concomitant]
     Dates: start: 20080401

REACTIONS (7)
  - ANGINA PECTORIS [None]
  - MALAISE [None]
  - TREMOR [None]
  - ATRIAL FIBRILLATION [None]
  - ASTHENIA [None]
  - CYANOSIS [None]
  - CHEST PAIN [None]
